FAERS Safety Report 8811117 (Version 3)
Quarter: 2012Q4

REPORT INFORMATION
  Report Type: 
  Country: GB (occurrence: GB)
  Receive Date: 20120927
  Receipt Date: 20121026
  Transmission Date: 20130627
  Serious: No
  Sender: FDA-Public Use
  Company Number: GB-SANOFI-AVENTIS-2012SA068732

PATIENT
  Age: 25 Year
  Sex: Female

DRUGS (1)
  1. ARAVA [Suspect]
     Indication: ARTHRITIS
     Dosage: mid july and mid aug
     Route: 048
     Dates: start: 201207, end: 201208

REACTIONS (2)
  - Back pain [Unknown]
  - Exposure during pregnancy [Unknown]
